FAERS Safety Report 7779789-X (Version None)
Quarter: 2011Q3

REPORT INFORMATION
  Report Type: 
  Country: None (occurrence: None)
  Receive Date: 20110927
  Receipt Date: 20110915
  Transmission Date: 20111222
  Serious: Yes (Other)
  Sender: FDA-Public Use
  Company Number: ZA-JNJFOC-20110809522

PATIENT
  Sex: Male
  Weight: 65 kg

DRUGS (7)
  1. REVELLEX [Suspect]
     Dosage: ALSO REPORTED AS 5 MG/KG
     Route: 042
     Dates: start: 20100119
  2. REVELLEX [Suspect]
     Dosage: ALSO REPORTED AS 5 MG/KG
     Route: 042
     Dates: start: 20100119
  3. REVELLEX [Suspect]
     Indication: CROHN'S DISEASE
     Route: 042
     Dates: start: 20110614
  4. ANTIHISTAMINE [Concomitant]
     Indication: PREMEDICATION
     Route: 065
  5. STEROIDS NOS [Concomitant]
     Indication: PREMEDICATION
     Route: 065
  6. AZATHIOPRINE [Concomitant]
     Route: 065
  7. REVELLEX [Suspect]
     Indication: COLITIS
     Route: 042
     Dates: start: 20110614

REACTIONS (3)
  - LUPUS-LIKE SYNDROME [None]
  - HYPERSENSITIVITY [None]
  - ARTHRALGIA [None]
